FAERS Safety Report 9016004 (Version 1)
Quarter: 2013Q1

REPORT INFORMATION
  Report Type: Spontaneous
  Country: US (occurrence: US)
  Receive Date: 20130116
  Receipt Date: 20130116
  Transmission Date: 20140127
  Serious: No
  Sender: FDA-Public Use
  Company Number: US-ASTRAZENECA-2012SE95031

PATIENT
  Age: 65 Year
  Sex: Female

DRUGS (2)
  1. NEXIUM [Suspect]
     Route: 048
  2. PRILOSEC [Suspect]
     Route: 048

REACTIONS (9)
  - Gastrooesophageal reflux disease [Unknown]
  - Pharyngeal disorder [Unknown]
  - Cough [Unknown]
  - Gastrointestinal erosion [Unknown]
  - Adverse drug reaction [Unknown]
  - Burning sensation [Unknown]
  - Oral discomfort [Unknown]
  - Headache [Unknown]
  - Retching [Unknown]
